FAERS Safety Report 5486333-9 (Version None)
Quarter: 2007Q4

REPORT INFORMATION
  Report Type: 
  Country: None (occurrence: None)
  Receive Date: 20071016
  Receipt Date: 20071009
  Transmission Date: 20080405
  Serious: Yes (Hospitalization)
  Sender: FDA-Public Use
  Company Number: BR-ASTRAZENECA-2005UW06128

PATIENT
  Age: 28374 Day
  Sex: Female
  Weight: 51 kg

DRUGS (9)
  1. ROSUVASTATIN [Suspect]
     Indication: RENAL FAILURE CHRONIC
     Route: 048
     Dates: start: 20041029, end: 20050412
  2. EPOGEN [Concomitant]
     Indication: ANAEMIA
     Route: 058
  3. IRON HYDROXIDE [Concomitant]
     Indication: ANAEMIA
     Route: 042
  4. CACO3 [Concomitant]
     Indication: HYPERPHOSPHATAEMIA
     Route: 048
  5. RENALVIT [Concomitant]
     Indication: VITAMIN SUPPLEMENTATION
     Route: 048
  6. NIFEDIPINE [Concomitant]
     Indication: HYPERTENSION
     Route: 048
  7. CALCITRIOL [Concomitant]
     Indication: OSTEODYSTROPHY
     Route: 048
  8. FUROSEMIDE [Concomitant]
     Indication: HYPERTENSION
     Route: 048
  9. DICLOFENACO [Concomitant]
     Indication: ARTHRITIS
     Route: 048

REACTIONS (1)
  - CONFUSIONAL STATE [None]
